FAERS Safety Report 25352890 (Version 1)
Quarter: 2025Q2

REPORT INFORMATION
  Report Type: Spontaneous
  Country: CN (occurrence: CN)
  Receive Date: 20250523
  Receipt Date: 20250523
  Transmission Date: 20250716
  Serious: Yes (Disabling)
  Sender: PFIZER
  Company Number: CN-PFIZER INC-PV202500061346

PATIENT
  Age: 67 Year
  Sex: Male

DRUGS (2)
  1. CYTARABINE [Suspect]
     Active Substance: CYTARABINE
     Indication: Lymphoma
     Dosage: 200 MG, 1X/DAY
     Route: 041
     Dates: start: 20250331, end: 20250331
  2. SODIUM CHLORIDE [Concomitant]
     Active Substance: SODIUM CHLORIDE
     Indication: Vehicle solution use
     Dosage: 250 ML, 1X/DAY
     Route: 041
     Dates: start: 20250331, end: 20250331

REACTIONS (5)
  - Platelet count decreased [Recovering/Resolving]
  - Myelosuppression [Recovering/Resolving]
  - Haematotoxicity [Recovering/Resolving]
  - Nausea [Recovering/Resolving]
  - Vomiting [Recovering/Resolving]

NARRATIVE: CASE EVENT DATE: 20250401
